FAERS Safety Report 10270123 (Version 5)
Quarter: 2018Q3

REPORT INFORMATION
  Report Type: Spontaneous
  Country: US (occurrence: US)
  Receive Date: 20140701
  Receipt Date: 20180810
  Transmission Date: 20181010
  Serious: Yes (Other)
  Sender: FDA-Public Use
  Company Number: US-BAYER-2014-098599

PATIENT
  Age: 23 Year
  Sex: Female
  Weight: 120 kg

DRUGS (3)
  1. LEXAPRO [Concomitant]
     Active Substance: ESCITALOPRAM OXALATE
  2. DEPO?PROVERA [Concomitant]
     Active Substance: MEDROXYPROGESTERONE ACETATE
  3. MIRENA [Suspect]
     Active Substance: LEVONORGESTREL
     Dosage: DAILY DOSE 20 MCG/24HR

REACTIONS (17)
  - Dyspareunia [Unknown]
  - Endometriosis [Unknown]
  - Vaginal discharge [Unknown]
  - Dysmenorrhoea [Unknown]
  - Fatigue [Unknown]
  - Ectopic pregnancy with contraceptive device [Unknown]
  - Device ineffective [Unknown]
  - Weight increased [Unknown]
  - Allergy to metals [Unknown]
  - Abdominal pain lower [Unknown]
  - Nausea [Unknown]
  - Abdominal pain [Not Recovered/Not Resolved]
  - Dyspareunia [Unknown]
  - Pelvic pain [Unknown]
  - Genital haemorrhage [Unknown]
  - Depression [Unknown]
  - Vulvovaginal pain [Unknown]

NARRATIVE: CASE EVENT DATE: 2013
